FAERS Safety Report 6369997-7 (Version None)
Quarter: 2009Q3

REPORT INFORMATION
  Report Type: 
  Country: None (occurrence: None)
  Receive Date: 20090923
  Receipt Date: 20070523
  Transmission Date: 20100115
  Serious: No
  Sender: FDA-Public Use
  Company Number: US-ASTRAZENECA-2006UW07755

PATIENT
  Age: 35 Year
  Sex: Female
  Weight: 88.5 kg

DRUGS (35)
  1. SEROQUEL [Suspect]
     Indication: BIPOLAR DISORDER
     Dosage: 25 MG TO 1000 MG
     Route: 048
     Dates: start: 20000101, end: 20080115
  2. SEROQUEL [Suspect]
     Route: 048
     Dates: start: 20010219
  3. HALDOL [Concomitant]
     Dates: start: 19980101
  4. RISPERDAL [Concomitant]
     Dosage: 1 MG TO 1000 MG
     Dates: start: 19930101, end: 19970101
  5. RISPERDAL [Concomitant]
     Dosage: 1 MG TO 1000 MG
     Dates: start: 20060101
  6. ZYPREXA [Concomitant]
  7. GEODON [Concomitant]
     Dates: start: 20080115
  8. DEPAKOTE [Concomitant]
  9. TRAZODONE [Concomitant]
  10. XANAX [Concomitant]
  11. TOPAMAX [Concomitant]
  12. LEXAPRO [Concomitant]
  13. EFFEXOR [Concomitant]
  14. PAXIL [Concomitant]
     Route: 048
     Dates: start: 19950101
  15. SONATA [Concomitant]
     Route: 065
     Dates: start: 20010101
  16. ZOMIG [Concomitant]
     Route: 065
     Dates: start: 20010101
  17. ACETAMINOPHEN [Concomitant]
     Dosage: 325 MG - 500 MG
     Route: 048
  18. IBUPROFEN [Concomitant]
     Route: 065
  19. METFORMIN HCL [Concomitant]
     Route: 065
  20. GEMFIBROZIL [Concomitant]
     Route: 065
  21. PROPRANOLOL [Concomitant]
     Route: 065
  22. ATIVAN [Concomitant]
     Route: 065
  23. ABILIFY [Concomitant]
     Route: 048
  24. PAROXETINE HCL [Concomitant]
     Route: 065
  25. LITHIUM [Concomitant]
     Route: 048
  26. CIPRO [Concomitant]
     Route: 065
  27. LEVAQUIN [Concomitant]
     Route: 065
  28. LOVASTATIN [Concomitant]
     Route: 065
  29. ALPRAZOLAM [Concomitant]
     Dosage: 1 MG 1-2 A DAY
     Route: 065
  30. ZOLOFT [Concomitant]
     Route: 065
  31. BENZTROPINE MESYLATE [Concomitant]
     Route: 048
  32. DROPERIDOL [Concomitant]
     Route: 065
  33. AUGMENTIN [Concomitant]
     Route: 065
  34. PEPCID [Concomitant]
     Route: 065
  35. METRONIDAZOLE [Concomitant]
     Route: 065

REACTIONS (5)
  - BLOOD CHOLESTEROL INCREASED [None]
  - BLOOD TRIGLYCERIDES INCREASED [None]
  - CYST REMOVAL [None]
  - DIABETES MELLITUS [None]
  - OBESITY [None]
